FAERS Safety Report 8582730-3 (Version None)
Quarter: 2012Q3

REPORT INFORMATION
  Report Type: 
  Country: None (occurrence: None)
  Receive Date: 20120809
  Receipt Date: 20120801
  Transmission Date: 20120928
  Serious: Yes (Death, Hospitalization, Other)
  Sender: FDA-Public Use
  Company Number: FR-BRISTOL-MYERS SQUIBB COMPANY-16753444

PATIENT
  Age: 91 Year
  Sex: Female

DRUGS (15)
  1. COUMADIN [Interacting]
     Dosage: 2/D FROM 11APR-15APR2012, 1/D FROM 15APR-18APR2012
     Route: 048
     Dates: start: 20120411, end: 20120418
  2. VITAMIN D [Concomitant]
     Dosage: 1 DF = 100000 UNITS
  3. EUPRESSYL [Concomitant]
     Dosage: TABS
  4. SYMBICORT [Concomitant]
  5. OMEPRAZOLE [Concomitant]
     Dosage: TABS
  6. LATANOPROST [Concomitant]
  7. PRAZEPAM [Concomitant]
     Dosage: TABS
  8. FENOFIBRATE [Interacting]
     Dosage: 1TAB
  9. CALCIPARINE [Suspect]
     Dosage: 1DF: 5000 IU/0.2 ML
     Route: 058
     Dates: start: 20120411, end: 20120418
  10. DESLORATADINE [Concomitant]
     Dosage: 1 DF = 1TABS
  11. TELMISARTAN AND HYDROCHLOROTHIAZIDE [Concomitant]
     Dosage: 1 DF = 80/12.5MG,TABS
  12. LEVOTHYROXINE SODIUM [Concomitant]
     Dosage: 1TABS
  13. CORDARONE [Concomitant]
     Dosage: TABS
  14. TRUSOPT [Concomitant]
  15. ZOLPIDEM [Concomitant]
     Dosage: 1DF = 1TABS

REACTIONS (4)
  - HAEMATOMA [None]
  - ANAEMIA [None]
  - MEDICATION ERROR [None]
  - DRUG INTERACTION [None]
